FAERS Safety Report 9266601 (Version 1)
Quarter: 2013Q2

REPORT INFORMATION
  Report Type: Report from Study
  Country: US (occurrence: US)
  Receive Date: 20130502
  Receipt Date: 20130502
  Transmission Date: 20140414
  Serious: Yes (Other)
  Sender: FDA-Public Use
  Company Number: PHEH2013US008190

PATIENT
  Age: 62 Year
  Sex: Female
  Weight: 63.75 kg

DRUGS (16)
  1. TASIGNA [Suspect]
     Indication: CHRONIC MYELOID LEUKAEMIA
     Dosage: UNK
     Dates: start: 201204, end: 201209
  2. TASIGNA [Suspect]
     Dosage: 800 MG, BID
     Dates: start: 20130306, end: 20130312
  3. ACETAMINOPHEN [Concomitant]
     Dosage: 2 DF
     Route: 048
  4. ASPIRIN [Concomitant]
     Dosage: 1 DF
     Route: 048
  5. HYDROXYUREA [Concomitant]
     Dosage: 2 DF, BID
  6. INSULIN GLARGINE [Concomitant]
     Dosage: 100 U
  7. INSULIN LISPRO [Concomitant]
     Dosage: 100 U
  8. ISOSORBIDE MONONITRATE [Concomitant]
     Dosage: 0.5 MG, DAILY
  9. LEVOTHYROXINE SODIUM [Concomitant]
     Dosage: 1 DF, DAILY
  10. LISINOPRIL [Concomitant]
     Dosage: 1 DF, DAILY
  11. LOPERAMIDE [Concomitant]
     Dosage: 1 DF, PRN
  12. LURASIDONE [Concomitant]
     Dosage: 1 DF
     Route: 048
  13. METOPROLOL [Concomitant]
     Dosage: 1 DF
     Route: 048
  14. OMEPRAZOLE [Concomitant]
     Dosage: 1 DF
     Route: 048
  15. PRAVASTATIN SODIUM [Concomitant]
     Dosage: 1 DF, QHS
     Route: 048
  16. SPRYCEL [Concomitant]
     Dosage: 1 DF
     Route: 048

REACTIONS (3)
  - Jaundice [Recovered/Resolved]
  - Hepatic enzyme increased [Recovered/Resolved]
  - Hepatomegaly [Recovered/Resolved]
